FAERS Safety Report 4974677-6 (Version None)
Quarter: 2006Q2

REPORT INFORMATION
  Report Type: 
  Country: None (occurrence: None)
  Receive Date: 20060417
  Receipt Date: 20060314
  Transmission Date: 20061013
  Serious: Yes (Hospitalization, Disabling)
  Sender: FDA-Public Use
  Company Number: US-MERCK-0603USA02479

PATIENT
  Age: 42 Year
  Sex: Male
  Weight: 102 kg

DRUGS (7)
  1. VIOXX [Suspect]
     Route: 048
     Dates: start: 20010101
  2. VICODIN [Concomitant]
     Route: 065
  3. LOPRESSOR [Concomitant]
     Route: 065
  4. LIPITOR [Concomitant]
     Route: 065
  5. ALLEGRA [Concomitant]
     Route: 065
  6. PREVACID [Concomitant]
     Route: 065
  7. PAXIL [Concomitant]
     Route: 065

REACTIONS (7)
  - ACUTE MYOCARDIAL INFARCTION [None]
  - ANXIETY [None]
  - ARTHROPATHY [None]
  - ATELECTASIS [None]
  - DEPRESSION [None]
  - MYOCARDIAL INFARCTION [None]
  - SINUS TACHYCARDIA [None]
